FAERS Safety Report 14144617 (Version 1)
Quarter: 2017Q4

REPORT INFORMATION
  Report Type: Spontaneous
  Country: JP (occurrence: JP)
  Receive Date: 20171031
  Receipt Date: 20171031
  Transmission Date: 20180321
  Serious: Yes (Other)
  Sender: FDA-Public Use
  Company Number: JP-ASTELLAS-2017JP020539

PATIENT
  Age: 56 Year
  Sex: Female

DRUGS (8)
  1. TACROLIMUS. [Suspect]
     Active Substance: TACROLIMUS
     Indication: INTERSTITIAL LUNG DISEASE
     Route: 065
  2. TACROLIMUS. [Suspect]
     Active Substance: TACROLIMUS
     Indication: SCLERODERMA
  3. TACROLIMUS. [Suspect]
     Active Substance: TACROLIMUS
     Indication: OVERLAP SYNDROME
  4. PREDNISOLONE. [Concomitant]
     Active Substance: PREDNISOLONE
     Indication: INTERSTITIAL LUNG DISEASE
     Route: 065
  5. PREDNISOLONE. [Concomitant]
     Active Substance: PREDNISOLONE
     Indication: POLYMYOSITIS
  6. PREDNISOLONE. [Concomitant]
     Active Substance: PREDNISOLONE
     Indication: SCLERODERMA
     Route: 065
  7. PREDNISOLONE. [Concomitant]
     Active Substance: PREDNISOLONE
     Indication: OVERLAP SYNDROME
  8. TACROLIMUS. [Suspect]
     Active Substance: TACROLIMUS
     Indication: POLYMYOSITIS

REACTIONS (1)
  - Thrombotic microangiopathy [Unknown]
